FAERS Safety Report 5472628-1 (Version None)
Quarter: 2007Q4

REPORT INFORMATION
  Report Type: 
  Country: None (occurrence: None)
  Receive Date: 20071001
  Receipt Date: 20060810
  Transmission Date: 20080405
  Serious: No
  Sender: FDA-Public Use
  Company Number: US-ASTRAZENECA-2006UW15980

PATIENT
  Sex: Female
  Weight: 78.9 kg

DRUGS (5)
  1. ARIMIDEX [Suspect]
     Indication: BREAST CANCER
     Route: 048
  2. TOPROL-XL [Concomitant]
  3. ZESTRIL [Concomitant]
  4. HYDROCHLOROTHIAZIDE [Concomitant]
  5. CARDIZEM CD [Concomitant]

REACTIONS (6)
  - ABDOMINAL PAIN UPPER [None]
  - AGEUSIA [None]
  - HOT FLUSH [None]
  - NAUSEA [None]
  - NIGHT SWEATS [None]
  - WEIGHT FLUCTUATION [None]
